FAERS Safety Report 25542391 (Version 2)
Quarter: 2025Q4

REPORT INFORMATION
  Report Type: Spontaneous
  Country: US (occurrence: US)
  Receive Date: 20250711
  Receipt Date: 20251222
  Transmission Date: 20260117
  Serious: No
  Sender: BRISTOL-MYERS SQUIBB COMPANY
  Company Number: US-BRISTOL-MYERS SQUIBB COMPANY-2025-097615

PATIENT
  Age: 85 Year
  Sex: Female
  Weight: 94.35 kg

DRUGS (1)
  1. LENALIDOMIDE [Suspect]
     Active Substance: LENALIDOMIDE
     Indication: Plasma cell myeloma
     Dosage: DAILY FOR 21 DAYS THEN OFF
     Route: 048

REACTIONS (3)
  - Arthralgia [Unknown]
  - Arthritis [Unknown]
  - Fatigue [Not Recovered/Not Resolved]
